FAERS Safety Report 8210652-6 (Version None)
Quarter: 2012Q1

REPORT INFORMATION
  Report Type: 
  Country: None (occurrence: None)
  Receive Date: 20120314
  Receipt Date: 20120305
  Transmission Date: 20120608
  Serious: Yes (Other)
  Sender: FDA-Public Use
  Company Number: US-ASTRAZENECA-2012SE15093

PATIENT
  Sex: Female

DRUGS (3)
  1. ZOLOFT [Suspect]
     Route: 065
  2. SEROQUEL [Suspect]
     Route: 048
  3. ZOLOFT [Suspect]
     Route: 065
     Dates: start: 20120101

REACTIONS (3)
  - OBSESSIVE-COMPULSIVE DISORDER [None]
  - VISION BLURRED [None]
  - TREMOR [None]
